FAERS Safety Report 5600345-3 (Version None)
Quarter: 2007Q4

REPORT INFORMATION
  Report Type: 
  Country: None (occurrence: None)
  Receive Date: 20071227
  Receipt Date: 20061125
  Transmission Date: 20080405
  Serious: Yes (Disabling)
  Sender: FDA-Public Use
  Company Number: 2006S1000283

PATIENT
  Age: 66 Year
  Sex: Male
  Weight: 78 kg

DRUGS (2)
  1. ACITRETIN [Suspect]
     Indication: DRUG USE FOR UNKNOWN INDICATION
     Dosage: 10 MG;UNK;PO
     Route: 048
     Dates: end: 20060101
  2. LIPITOR [Concomitant]

REACTIONS (2)
  - PAIN [None]
  - SKIN EXFOLIATION [None]
